FAERS Safety Report 10565343 (Version 1)
Quarter: 2014Q4

REPORT INFORMATION
  Report Type: Spontaneous
  Country: US (occurrence: None)
  Receive Date: 20141103
  Receipt Date: 20141103
  Transmission Date: 20150529
  Serious: Yes (Hospitalization)
  Sender: FDA-Public Use
  Company Number: VAL_03558_2014

PATIENT
  Age: 8 Year
  Sex: Male

DRUGS (8)
  1. SINGULAIR [Concomitant]
     Active Substance: MONTELUKAST SODIUM
  2. CALCIUM CARBONATE. [Concomitant]
     Active Substance: CALCIUM CARBONATE
  3. XOPENEX [Concomitant]
     Active Substance: LEVALBUTEROL HYDROCHLORIDE
  4. PATANOL [Concomitant]
     Active Substance: OLOPATADINE HYDROCHLORIDE
  5. BICITRA / 00586801/ [Concomitant]
  6. NUTROPIN AQ [Concomitant]
     Active Substance: SOMATROPIN
  7. CALCITRIOL. [Suspect]
     Active Substance: CALCITRIOL
     Indication: PRODUCT USED FOR UNKNOWN INDICATION
     Route: 048
  8. PULMICORT TURBUHALER [Concomitant]
     Active Substance: BUDESONIDE

REACTIONS (7)
  - Creatinine urine increased [None]
  - White blood cell count decreased [None]
  - Haemoglobin decreased [None]
  - Tinea infection [None]
  - Haematocrit decreased [None]
  - Blood urea increased [None]
  - Red blood cell count decreased [None]

NARRATIVE: CASE EVENT DATE: 20110811
